FAERS Safety Report 6894721-9 (Version None)
Quarter: 2010Q3

REPORT INFORMATION
  Report Type: 
  Country: None (occurrence: None)
  Receive Date: 20100730
  Receipt Date: 20100730
  Transmission Date: 20110219
  Serious: Yes (Life-Threatening)
  Sender: FDA-Public Use
  Company Number: None

PATIENT
  Sex: Female
  Weight: 59.8748 kg

DRUGS (1)
  1. ZYPREXA [Suspect]
     Indication: AGGRESSION
     Dosage: 7.5 MG 2X BY MOUTH
     Route: 048
     Dates: start: 20100720

REACTIONS (2)
  - RASH [None]
  - VOMITING [None]
